FAERS Safety Report 10207308 (Version 1)
Quarter: 2014Q2

REPORT INFORMATION
  Report Type: Spontaneous
  Country: US (occurrence: None)
  Receive Date: 20140527
  Receipt Date: 20140527
  Transmission Date: 20141212
  Serious: Yes (Hospitalization)
  Sender: FDA-Public Use
  Company Number: None

PATIENT
  Age: 21 Year
  Sex: Female

DRUGS (1)
  1. LAMOTRIGINE [Suspect]
     Indication: BIPOLAR DISORDER
     Dates: start: 20120715, end: 20120927

REACTIONS (5)
  - Drug-induced liver injury [None]
  - International normalised ratio increased [None]
  - Eosinophilia [None]
  - Hepatitis acute [None]
  - Seronegative arthritis [None]
